FAERS Safety Report 6019193-8 (Version None)
Quarter: 2008Q4

REPORT INFORMATION
  Report Type: 
  Country: None (occurrence: None)
  Receive Date: 20081224
  Receipt Date: 20081215
  Transmission Date: 20090506
  Serious: Yes (Death)
  Sender: FDA-Public Use
  Company Number: JP-PFIZER INC-2008150685

PATIENT

DRUGS (2)
  1. SOLU-MEDROL [Suspect]
     Dosage: TDD:500 MG
  2. PREDNISOLONE [Suspect]

REACTIONS (1)
  - DISSEMINATED CRYPTOCOCCOSIS [None]
